FAERS Safety Report 5869524-4 (Version None)
Quarter: 2008Q3

REPORT INFORMATION
  Report Type: 
  Country: None (occurrence: None)
  Receive Date: 20080904
  Receipt Date: 20080829
  Transmission Date: 20090109
  Serious: Yes (Hospitalization)
  Sender: FDA-Public Use
  Company Number: GB-BAYER-200812308BNE

PATIENT
  Age: 47 Year
  Sex: Female

DRUGS (1)
  1. BETAFERON [Suspect]
     Indication: MULTIPLE SCLEROSIS
     Route: 058

REACTIONS (6)
  - AGGRESSION [None]
  - DELIRIUM [None]
  - DIARRHOEA [None]
  - INFLUENZA LIKE ILLNESS [None]
  - PYREXIA [None]
  - VOMITING [None]
